FAERS Safety Report 4587233-9 (Version None)
Quarter: 2005Q1

REPORT INFORMATION
  Report Type: 
  Country: None (occurrence: None)
  Receive Date: 20050218
  Receipt Date: 20050113
  Transmission Date: 20050727
  Serious: Yes (Death)
  Sender: FDA-Public Use
  Company Number: GB-GLAXOSMITHKLINE-B0364455A

PATIENT
  Age: 77 Year
  Sex: Male
  Weight: 94 kg

DRUGS (5)
  1. AVANDIA [Suspect]
     Indication: DIABETES MELLITUS
     Dosage: 4MG PER DAY
     Route: 048
     Dates: start: 20001207, end: 20041101
  2. GLICLAZIDE [Concomitant]
     Indication: DIABETES MELLITUS
     Dosage: 80MG PER DAY
     Route: 048
     Dates: start: 19940101
  3. CO-CODAMOL [Concomitant]
     Indication: ARTHRITIS
     Dosage: 2UNIT FOUR TIMES PER DAY
     Route: 048
     Dates: start: 20020101
  4. ASPIRIN [Concomitant]
     Indication: CARDIOVASCULAR DISORDER
     Dosage: 75MG PER DAY
     Route: 048
     Dates: start: 19980101
  5. DOSULEPIN [Concomitant]
     Indication: DEPRESSION
     Dosage: 75MG PER DAY
     Route: 048
     Dates: start: 20041122

REACTIONS (9)
  - ANAEMIA [None]
  - FATIGUE [None]
  - GASTRIC HAEMORRHAGE [None]
  - HEPATIC CIRRHOSIS [None]
  - HEPATIC NEOPLASM MALIGNANT [None]
  - INSOMNIA [None]
  - LIVER FUNCTION TEST ABNORMAL [None]
  - MALAISE [None]
  - PROSTATIC DISORDER [None]
